FAERS Safety Report 7250122-5 (Version None)
Quarter: 2011Q1

REPORT INFORMATION
  Report Type: 
  Country: None (occurrence: None)
  Receive Date: 20110128
  Receipt Date: 20110106
  Transmission Date: 20110831
  Serious: Yes (Other)
  Sender: FDA-Public Use
  Company Number: CN-BAYER-2011-001919

PATIENT
  Age: 52 Year
  Sex: Female

DRUGS (5)
  1. CARBOCISTEINE [Concomitant]
     Indication: COUGH
  2. INDOMETACIN [Concomitant]
     Indication: ANTIPYRESIS
  3. AVELOX [Suspect]
     Indication: PNEUMONIA
     Dosage: 400 MG, QD
     Route: 042
     Dates: start: 20091211, end: 20091220
  4. AMBROXOL [Concomitant]
     Indication: COUGH
  5. HERBAL PREPARATION [Concomitant]
     Indication: COUGH

REACTIONS (3)
  - PLATELET COUNT INCREASED [None]
  - MYALGIA [None]
  - LIVER INJURY [None]
